FAERS Safety Report 16278936 (Version 3)
Quarter: 2019Q2

REPORT INFORMATION
  Report Type: Spontaneous
  Country: US (occurrence: US)
  Receive Date: 20190506
  Receipt Date: 20190521
  Transmission Date: 20190711
  Serious: Yes (Hospitalization)
  Sender: FDA-Public Use
  Company Number: US-ACTELION-A-NJ2019-190055

PATIENT
  Sex: Female
  Weight: 10.43 kg

DRUGS (3)
  1. SILDENAFIL CITRATE. [Concomitant]
     Active Substance: SILDENAFIL CITRATE
  2. TRACLEER [Suspect]
     Active Substance: BOSENTAN
     Indication: PULMONARY ARTERIAL HYPERTENSION
     Dosage: 31.25 MG, BID
     Route: 049
     Dates: start: 201810
  3. TRACLEER [Suspect]
     Active Substance: BOSENTAN
     Dosage: 32 MG, BID VIA G-TUBE
     Route: 048

REACTIONS (1)
  - Cranial operation [Unknown]
